FAERS Safety Report 4568662-6 (Version None)
Quarter: 2005Q1

REPORT INFORMATION
  Report Type: 
  Country: None (occurrence: None)
  Receive Date: 20050202
  Receipt Date: 20041104
  Transmission Date: 20050727
  Serious: Yes (Death, Hospitalization, Disabling)
  Sender: FDA-Public Use
  Company Number: JP-MERCK-0411USA01687

PATIENT
  Age: 77 Year
  Sex: Male
  Weight: 40 kg

DRUGS (6)
  1. DECADRON [Suspect]
     Indication: PROSTATE CANCER
     Route: 048
     Dates: start: 20021017, end: 20021127
  2. HARNAL [Concomitant]
     Indication: DYSURIA
     Route: 048
     Dates: start: 20001121
  3. NOVAMIN (PROCHLORPERAZINE MESYLATE) [Concomitant]
     Indication: VOMITING
     Route: 048
     Dates: start: 20010321, end: 20031220
  4. LOXONIN [Concomitant]
     Indication: ANALGESIC EFFECT
     Route: 048
     Dates: start: 20010321, end: 20031220
  5. GASTER [Concomitant]
     Indication: GASTRIC DISORDER
     Route: 048
     Dates: start: 20010321, end: 20031220
  6. MAGNESIUM OXIDE [Concomitant]
     Indication: CONSTIPATION
     Route: 048
     Dates: start: 20010321, end: 20031220

REACTIONS (2)
  - PROSTATE CANCER [None]
  - SPINAL COMPRESSION FRACTURE [None]
